FAERS Safety Report 19482411 (Version 1)
Quarter: 2021Q3

REPORT INFORMATION
  Report Type: Spontaneous
  Country: US (occurrence: US)
  Receive Date: 20210701
  Receipt Date: 20210701
  Transmission Date: 20211014
  Serious: Yes (Hospitalization)
  Sender: FDA-Public Use
  Company Number: None

PATIENT
  Age: 64 Year
  Sex: Male
  Weight: 66 kg

DRUGS (1)
  1. TAXOL [Suspect]
     Active Substance: PACLITAXEL
     Dates: end: 20210621

REACTIONS (5)
  - Palpitations [None]
  - Ventricular hypertrophy [None]
  - Heart rate increased [None]
  - Atrial flutter [None]
  - Atrioventricular block [None]

NARRATIVE: CASE EVENT DATE: 20210628
